FAERS Safety Report 7527456-X (Version None)
Quarter: 2011Q2

REPORT INFORMATION
  Report Type: 
  Country: None (occurrence: None)
  Receive Date: 20110527
  Receipt Date: 20110519
  Transmission Date: 20111010
  Serious: Yes (Hospitalization)
  Sender: FDA-Public Use
  Company Number: UTC-007311

PATIENT
  Age: 54 Year
  Sex: Female

DRUGS (2)
  1. REMODULIN [Suspect]
     Indication: PULMONARY ARTERIAL HYPERTENSION
     Dosage: 72 UG/KG (0.05 UG/KG, 1 IN 1 MIN), SUBCUTANEOUS
     Route: 058
     Dates: start: 20091130
  2. COUMADIN [Concomitant]

REACTIONS (4)
  - MIGRAINE [None]
  - HOT FLUSH [None]
  - CHEST DISCOMFORT [None]
  - PAIN IN EXTREMITY [None]
